FAERS Safety Report 4635488-4 (Version None)
Quarter: 2005Q2

REPORT INFORMATION
  Report Type: 
  Country: None (occurrence: None)
  Receive Date: 20050413
  Receipt Date: 20050329
  Transmission Date: 20051028
  Serious: Yes (Disabling)
  Sender: FDA-Public Use
  Company Number: PHNR2005AU00626

PATIENT
  Age: 80 Year
  Sex: Male

DRUGS (4)
  1. VISUDYNE [Suspect]
     Indication: CHOROIDAL NEOVASCULARISATION
     Dates: start: 20021201, end: 20021201
  2. ALPHAGAN [Concomitant]
  3. XALATAN [Concomitant]
  4. FELODIPINE [Concomitant]

REACTIONS (4)
  - ANION GAP DECREASED [None]
  - ARTHRITIS [None]
  - C-REACTIVE PROTEIN INCREASED [None]
  - RED BLOOD CELL SEDIMENTATION RATE INCREASED [None]
